FAERS Safety Report 15295389 (Version 1)
Quarter: 2018Q3

REPORT INFORMATION
  Report Type: Spontaneous
  Country: US (occurrence: US)
  Receive Date: 20180807
  Receipt Date: 20180807
  Transmission Date: 20181010
  Serious: Yes (Other)
  Sender: FDA-Public Use
  Company Number: None

PATIENT
  Age: 76 Year
  Sex: Male
  Weight: 105.75 kg

DRUGS (9)
  1. VALSARTAN/HCTZ 80MG/12.5MG 90CT [Suspect]
     Active Substance: HYDROCHLOROTHIAZIDE\VALSARTAN
     Indication: HYPERTENSION
     Dosage: ?          QUANTITY:1 DF DOSAGE FORM;?
     Route: 048
     Dates: start: 20150101, end: 20180801
  2. OLMESARTAN HCTZ [Concomitant]
     Active Substance: HYDROCHLOROTHIAZIDE\OLMESARTAN MEDOXOMIL
  3. TAMSULOSIN [Concomitant]
     Active Substance: TAMSULOSIN
  4. ASPRIN [Concomitant]
     Active Substance: ASPIRIN
  5. PACLITAXEL ELUTING CORONARY STENT [Concomitant]
  6. OMEG 3 ETHY ESTE [Concomitant]
  7. VITAMIN D [Concomitant]
     Active Substance: CHOLECALCIFEROL
  8. VITAMIN C [Concomitant]
     Active Substance: ASCORBIC ACID
  9. FLAXSEED [Concomitant]
     Active Substance: FLAX SEED

REACTIONS (1)
  - Prostate cancer [None]

NARRATIVE: CASE EVENT DATE: 20180717
